FAERS Safety Report 23959948 (Version 1)
Quarter: 2024Q2

REPORT INFORMATION
  Report Type: Spontaneous
  Country: US (occurrence: US)
  Receive Date: 20240611
  Receipt Date: 20240611
  Transmission Date: 20240716
  Serious: Yes (Death, Hospitalization, Other)
  Sender: FDA-Public Use
  Company Number: US-OPELLA-2024OHG020088

PATIENT
  Age: 87 Year
  Sex: Female
  Weight: 81.8 kg

DRUGS (1)
  1. TALC [Suspect]
     Active Substance: TALC
     Indication: Product used for unknown indication

REACTIONS (5)
  - Pleural mesothelioma [Fatal]
  - Pain [Unknown]
  - Mobility decreased [Unknown]
  - Anxiety [Unknown]
  - Cognitive disorder [Unknown]
